FAERS Safety Report 9698737 (Version 1)
Quarter: 2013Q4

REPORT INFORMATION
  Report Type: Spontaneous
  Country: CA (occurrence: None)
  Receive Date: 20131118
  Receipt Date: 20131118
  Transmission Date: 20140711
  Serious: Yes (Other)
  Sender: FDA-Public Use
  Company Number: SYM-2013-12795

PATIENT
  Age: 45 Year
  Sex: Male
  Weight: 115 kg

DRUGS (4)
  1. NITOMAN [Suspect]
     Indication: PRODUCT USED FOR UNKNOWN INDICATION
     Route: 048
  2. PARSITAN [Suspect]
     Indication: PRODUCT USED FOR UNKNOWN INDICATION
     Route: 048
  3. APOTRIHEX (TRIHEXY-PHENIDYL HYDROCHLORIDE) (TABLETS) (TRIHEXYPHENIDYL) [Concomitant]
  4. ARTHROTEC (ARTHROTEC) (TABLET) (DICLOFENAC SODIUM, MISOPROSTOL) [Concomitant]

REACTIONS (1)
  - Paraesthesia [None]
